FAERS Safety Report 14631468 (Version 2)
Quarter: 2018Q1

REPORT INFORMATION
  Report Type: Report from Study
  Country: None (occurrence: US)
  Receive Date: 20180313
  Receipt Date: 20180328
  Transmission Date: 20180509
  Serious: Yes (Life-Threatening, Hospitalization, Other)
  Sender: FDA-Public Use
  Company Number: US-BAUSCH-BL-2018-006235

PATIENT
  Sex: Female
  Weight: 84.9 kg

DRUGS (2)
  1. XIFAXAN [Suspect]
     Active Substance: RIFAXIMIN
     Indication: PRODUCT USED FOR UNKNOWN INDICATION
     Dosage: 1 PILL
     Route: 065
  2. LACTULOSE. [Concomitant]
     Active Substance: LACTULOSE
     Indication: FAECES HARD
     Dosage: 10GM/15ML, TAKEN 30 ML 4 TIMES A DAY TO ACHIVE 2-3 SOFT STOOL DAILY

REACTIONS (17)
  - Blood cholesterol increased [Unknown]
  - Vertigo [Unknown]
  - Hysterectomy [Recovering/Resolving]
  - Memory impairment [Unknown]
  - Adverse event [Unknown]
  - Diastolic dysfunction [Recovering/Resolving]
  - Hernia [Unknown]
  - Vitamin D deficiency [Unknown]
  - Rash [Unknown]
  - Pancreatitis [Recovering/Resolving]
  - Peripheral swelling [Unknown]
  - Thrombosis [Recovering/Resolving]
  - Hypertension [Unknown]
  - Peripheral venous disease [Unknown]
  - Polyp [Unknown]
  - Haemorrhoids [Unknown]
  - Hepatic cirrhosis [Recovering/Resolving]
